FAERS Safety Report 8560566-7 (Version None)
Quarter: 2012Q3

REPORT INFORMATION
  Report Type: 
  Country: None (occurrence: None)
  Receive Date: 20120723
  Receipt Date: 20120709
  Transmission Date: 20120928
  Serious: Yes (Death, Other)
  Sender: FDA-Public Use
  Company Number: MPS1-1000719

PATIENT
  Age: 12 Year
  Sex: Male
  Weight: 13.8 kg

DRUGS (7)
  1. ACETAZOLAMIDE [Concomitant]
  2. CAPTOPRIL [Concomitant]
  3. MORPHINE [Concomitant]
  4. ALDURAZYME [Suspect]
     Indication: MUCOPOLYSACCHARIDOSIS I
     Dosage: 0.63 MG/KG, QW, INTRAVENOUS
     Route: 042
     Dates: start: 20031021, end: 20120617
  5. FUROSEMIDE [Concomitant]
  6. FLUTICASONE PROPIONATE/SALMETEROL [Concomitant]
  7. VENTILAN (SALBUTAMOL) [Concomitant]

REACTIONS (5)
  - INFLUENZA LIKE ILLNESS [None]
  - CONDITION AGGRAVATED [None]
  - MUCOPOLYSACCHARIDOSIS I [None]
  - INFECTION [None]
  - CHRONIC RESPIRATORY FAILURE [None]
